FAERS Safety Report 25054774 (Version 1)
Quarter: 2025Q1

REPORT INFORMATION
  Report Type: Report from Study
  Country: US (occurrence: US)
  Receive Date: 20250308
  Receipt Date: 20250308
  Transmission Date: 20250409
  Serious: No
  Sender: ACADIA PHARMACEUTICALS
  Company Number: US-ACADIA PHARMACEUTICALS INC.-ACA-2025-PIM-002282

PATIENT
  Age: 82 Year
  Sex: Female

DRUGS (1)
  1. NUPLAZID [Suspect]
     Active Substance: PIMAVANSERIN TARTRATE
     Indication: Parkinson^s disease
     Dosage: 10 MILLIGRAM, QD (IN THE MORNING)
     Route: 048
     Dates: start: 202502

REACTIONS (5)
  - Bradykinesia [Unknown]
  - Daydreaming [Unknown]
  - Posture abnormal [Unknown]
  - Gait disturbance [Unknown]
  - Somnolence [Unknown]

NARRATIVE: CASE EVENT DATE: 20250201
